FAERS Safety Report 11000615 (Version 1)
Quarter: 2015Q2

REPORT INFORMATION
  Report Type: Spontaneous
  Country: US (occurrence: US)
  Receive Date: 20150408
  Receipt Date: 20150408
  Transmission Date: 20150821
  Serious: No
  Sender: FDA-Public Use
  Company Number: US-SA-2014SA137448

PATIENT
  Sex: Female

DRUGS (1)
  1. ALLEGRA [Suspect]
     Active Substance: FEXOFENADINE HYDROCHLORIDE
     Dosage: TOOK TWO ALLEGRA ALLERGY 12 HR PILLS, THE DAY BEFORE YESTERDAY, AND YESTERDAY
     Route: 048
     Dates: start: 20140929

REACTIONS (1)
  - Faeces discoloured [Unknown]
